FAERS Safety Report 5296654-0 (Version None)
Quarter: 2007Q2

REPORT INFORMATION
  Report Type: 
  Country: None (occurrence: None)
  Receive Date: 20070413
  Receipt Date: 20070404
  Transmission Date: 20071010
  Serious: Yes (Other)
  Sender: FDA-Public Use
  Company Number: US-PFIZER INC-2007007401

PATIENT
  Age: 50 Year
  Sex: Female
  Weight: 64 kg

DRUGS (7)
  1. CHANTIX [Suspect]
     Indication: EX-SMOKER
  2. AMBIEN [Concomitant]
  3. SYNTHROID [Concomitant]
     Route: 048
  4. ZOCOR [Concomitant]
  5. TEVETEN [Concomitant]
  6. ZYRTEC [Concomitant]
  7. VALIUM [Concomitant]

REACTIONS (3)
  - ORAL MUCOSAL BLISTERING [None]
  - THROAT LESION [None]
  - TONGUE ERUPTION [None]
